FAERS Safety Report 9016867 (Version 3)
Quarter: 2013Q1

REPORT INFORMATION
  Report Type: Spontaneous
  Country: US (occurrence: US)
  Receive Date: 20130117
  Receipt Date: 20130327
  Transmission Date: 20140127
  Serious: Yes (Other)
  Sender: FDA-Public Use
  Company Number: US-ELI_LILLY_AND_COMPANY-US201301002737

PATIENT
  Sex: Male

DRUGS (1)
  1. FORTEO [Suspect]
     Indication: OSTEOPOROSIS
     Dosage: 20 UG, QD

REACTIONS (5)
  - Thrombosis [Unknown]
  - Lymphoedema [Not Recovered/Not Resolved]
  - Incision site complication [Recovered/Resolved]
  - Blood testosterone decreased [Unknown]
  - Decreased immune responsiveness [Unknown]
